FAERS Safety Report 9129447 (Version 1)
Quarter: 2013Q1

REPORT INFORMATION
  Report Type: Spontaneous
  Country: US (occurrence: US)
  Receive Date: 20130228
  Receipt Date: 20130228
  Transmission Date: 20140127
  Serious: Yes (Other)
  Sender: FDA-Public Use
  Company Number: US-GLAXOSMITHKLINE-A1013258A

PATIENT
  Sex: Female

DRUGS (1)
  1. CARVEDILOL [Suspect]
     Indication: HYPERTENSION
     Route: 065
     Dates: start: 2011

REACTIONS (4)
  - Loss of consciousness [Unknown]
  - Weight decreased [Unknown]
  - Blood pressure increased [Unknown]
  - Psychotic disorder [Unknown]
